FAERS Safety Report 19993346 (Version 1)
Quarter: 2021Q4

REPORT INFORMATION
  Report Type: Spontaneous
  Country: US (occurrence: US)
  Receive Date: 20211025
  Receipt Date: 20211025
  Transmission Date: 20220303
  Serious: No
  Sender: FDA-Public Use
  Company Number: US-ABBVIE-21K-163-3851423-00

PATIENT
  Sex: Female

DRUGS (1)
  1. LUPRON DEPOT [Suspect]
     Active Substance: LEUPROLIDE ACETATE
     Indication: Uterine leiomyoma
     Route: 030
     Dates: start: 2019, end: 20210224

REACTIONS (2)
  - Haemoglobin decreased [Unknown]
  - Heavy menstrual bleeding [Not Recovered/Not Resolved]
